FAERS Safety Report 5609717-4 (Version None)
Quarter: 2008Q1

REPORT INFORMATION
  Report Type: 
  Country: None (occurrence: None)
  Receive Date: 20080131
  Receipt Date: 20080125
  Transmission Date: 20080703
  Serious: Yes (Other)
  Sender: FDA-Public Use
  Company Number: B0505905A

PATIENT
  Age: 40 Year
  Sex: Male

DRUGS (2)
  1. AUGMENTIN '125' [Suspect]
     Indication: ACUTE TONSILLITIS
     Route: 048
     Dates: start: 20070901
  2. ENANTYUM [Suspect]
     Indication: ACUTE TONSILLITIS
     Dosage: 12.5MG SINGLE DOSE
     Route: 048
     Dates: start: 20070901

REACTIONS (5)
  - CONJUNCTIVAL HYPERAEMIA [None]
  - DYSPHONIA [None]
  - DYSPNOEA [None]
  - LARYNGEAL OEDEMA [None]
  - URTICARIA [None]
